FAERS Safety Report 10066907 (Version 2)
Quarter: 2014Q2

REPORT INFORMATION
  Report Type: Spontaneous
  Country: US (occurrence: US)
  Receive Date: 20140409
  Receipt Date: 20140501
  Transmission Date: 20141212
  Serious: Yes (Other)
  Sender: FDA-Public Use
  Company Number: US-JNJFOC-20140317084

PATIENT
  Age: 44 Year
  Sex: Male

DRUGS (6)
  1. BENADRYL [Suspect]
     Route: 065
  2. BENADRYL [Suspect]
     Indication: FOOD ALLERGY
     Route: 065
  3. PEPCID [Suspect]
     Route: 065
  4. PEPCID [Suspect]
     Indication: PRODUCT USED FOR UNKNOWN INDICATION
     Route: 065
  5. EPINEPHRINE [Suspect]
     Indication: PRODUCT USED FOR UNKNOWN INDICATION
     Route: 030
  6. SOLUMEDROL (METHYLPREDNISOLONE SODIUM SUCCINATE) [Suspect]
     Indication: PRODUCT USED FOR UNKNOWN INDICATION
     Route: 065

REACTIONS (2)
  - Vocal cord disorder [Unknown]
  - Drug ineffective for unapproved indication [Unknown]
